FAERS Safety Report 24433085 (Version 1)
Quarter: 2024Q4

REPORT INFORMATION
  Report Type: Spontaneous
  Country: GB (occurrence: GB)
  Receive Date: 20241014
  Receipt Date: 20241014
  Transmission Date: 20250114
  Serious: Yes (Other)
  Sender: MYLAN
  Company Number: None

PATIENT
  Age: 23 Year
  Sex: Female
  Weight: 126 kg

DRUGS (6)
  1. ROCURONIUM [Suspect]
     Active Substance: ROCURONIUM BROMIDE
     Indication: Induction of anaesthesia
     Dosage: 100 MILLIGRAM (ONCE ONLY)
     Route: 065
     Dates: start: 20240912, end: 20240912
  2. CEFAZOLIN [Suspect]
     Active Substance: CEFAZOLIN
     Indication: Antibiotic prophylaxis
     Dosage: 3 GRAM (1 GRAM GIVEN)
     Route: 065
     Dates: start: 20240912, end: 20240912
  3. PROPOFOL [Concomitant]
     Active Substance: PROPOFOL
     Indication: Induction of anaesthesia
     Dosage: UNK
     Route: 065
     Dates: start: 20240912, end: 20240912
  4. REMIFENTANIL [Concomitant]
     Active Substance: REMIFENTANIL
     Indication: Induction of anaesthesia
     Dosage: UNK
     Route: 065
     Dates: start: 20240912, end: 20240912
  5. SERTRALINE [Concomitant]
     Active Substance: SERTRALINE HYDROCHLORIDE
     Dosage: UNK
     Route: 065
  6. LIDOCAINE [Concomitant]
     Active Substance: LIDOCAINE
     Indication: Induction of anaesthesia
     Dosage: UNK
     Route: 065

REACTIONS (3)
  - Erythema [Recovered/Resolved]
  - Hypotension [Recovered/Resolved]
  - Tachycardia [Recovered/Resolved]

NARRATIVE: CASE EVENT DATE: 20240912
